FAERS Safety Report 24818696 (Version 1)
Quarter: 2025Q1

REPORT INFORMATION
  Report Type: Spontaneous
  Country: US (occurrence: US)
  Receive Date: 20250108
  Receipt Date: 20250108
  Transmission Date: 20250409
  Serious: Yes (Other)
  Sender: LUPIN
  Company Number: US-LUPIN PHARMACEUTICALS INC.-2024-13417

PATIENT
  Age: 66 Year
  Sex: Male

DRUGS (1)
  1. CINACALCET [Suspect]
     Active Substance: CINACALCET
     Indication: Hypercalcaemia
     Route: 065

REACTIONS (1)
  - Gastric ulcer [Recovered/Resolved]
